FAERS Safety Report 12437709 (Version 3)
Quarter: 2016Q3

REPORT INFORMATION
  Report Type: Report from Study
  Country: JP (occurrence: JP)
  Receive Date: 20160606
  Receipt Date: 20160719
  Transmission Date: 20161109
  Serious: Yes (Hospitalization)
  Sender: FDA-Public Use
  Company Number: JP-TEVA-666116ISR

PATIENT
  Age: 70 Year
  Sex: Female
  Weight: 70.5 kg

DRUGS (17)
  1. MADOPAR [Concomitant]
     Active Substance: BENSERAZIDE HYDROCHLORIDE\LEVODOPA
     Dosage: ONGOING
  2. AZEPTIN [Concomitant]
     Dosage: ONGOING
  3. PREDONINE [Concomitant]
     Active Substance: PREDNISOLONE\PREDNISOLONE ACETATE\PREDNISOLONE SODIUM SUCCINATE
     Dosage: ONGOING
  4. RASAGILINE MESILATE [Suspect]
     Active Substance: RASAGILINE MESYLATE
     Indication: PARKINSON^S DISEASE
     Dosage: 1 MILLIGRAM DAILY;
     Route: 048
     Dates: start: 20150916, end: 20160526
  5. SYMMETREL [Concomitant]
     Active Substance: AMANTADINE HYDROCHLORIDE
     Dosage: ONGOING
  6. NU-LOTAN [Concomitant]
     Active Substance: LOSARTAN POTASSIUM
     Dosage: ONGOING
  7. SULTANOL [Concomitant]
     Active Substance: ALBUTEROL SULFATE
     Dosage: ONGOING
  8. DOPACOL [Concomitant]
     Active Substance: CARBIDOPA\LEVODOPA
     Dosage: ONGOING
  9. COMTAN [Concomitant]
     Active Substance: ENTACAPONE
     Dosage: ONGOING
  10. PYRETHIA [Concomitant]
     Active Substance: PROMETHAZINE HYDROCHLORIDE
     Dosage: ONGOING
  11. MUCOSOLVAN L [Concomitant]
     Active Substance: AMBROXOL HYDROCHLORIDE
     Dosage: ONGOING
  12. CELECOX [Concomitant]
     Active Substance: CELECOXIB
     Dosage: ONGOING
  13. ALVESCO [Concomitant]
     Active Substance: CICLESONIDE
     Dosage: ONGOING
  14. PLAVIX [Concomitant]
     Active Substance: CLOPIDOGREL BISULFATE
     Dosage: ONGOING
     Dates: start: 20151209
  15. SKYRON [Concomitant]
     Dosage: DF: NASAL DROPS. ONGOING
  16. UNIPHYLLA [Concomitant]
     Active Substance: THEOPHYLLINE ANHYDROUS
     Dosage: ONGOING
  17. KETOPROFEN. [Concomitant]
     Active Substance: KETOPROFEN
     Dosage: TAPE (INCLUDING POULTICE). ONGOING

REACTIONS (2)
  - Femur fracture [Recovered/Resolved]
  - Fall [Recovered/Resolved]

NARRATIVE: CASE EVENT DATE: 20160526
